FAERS Safety Report 7531788-9 (Version None)
Quarter: 2011Q2

REPORT INFORMATION
  Report Type: 
  Country: None (occurrence: None)
  Receive Date: 20110601
  Receipt Date: 20110518
  Transmission Date: 20111010
  Serious: Yes (Hospitalization, Other)
  Sender: FDA-Public Use
  Company Number: 1000021225

PATIENT
  Age: 74 Year
  Sex: Female

DRUGS (5)
  1. MEMANTINE [Suspect]
     Indication: DEMENTIA ALZHEIMER'S TYPE
     Dosage: 20 MG (20 MG, 1 IN 1 D), ORAL
     Route: 048
  2. RIVOTRIL (CLONAZEAPAM) [Concomitant]
  3. OMEPRAZOLE [Concomitant]
  4. METFORMIN HCL [Concomitant]
  5. XELEVIA (SITAGLIPTIN) [Concomitant]

REACTIONS (2)
  - URINARY RETENTION [None]
  - MICTURITION FREQUENCY DECREASED [None]
